FAERS Safety Report 5401185-0 (Version None)
Quarter: 2007Q3

REPORT INFORMATION
  Report Type: 
  Country: None (occurrence: None)
  Receive Date: 20070731
  Receipt Date: 20070725
  Transmission Date: 20080115
  Serious: Yes (Other)
  Sender: FDA-Public Use
  Company Number: PHBS2007BR12579

PATIENT
  Age: 39 Year
  Sex: Female
  Weight: 53 kg

DRUGS (2)
  1. PARLODEL [Suspect]
     Indication: HYPERPROLACTINAEMIA
     Dosage: 5 MG VERY 21 HOURS
     Route: 048
  2. OMEPRAZOLE [Concomitant]
     Indication: ABDOMINAL PAIN
     Dosage: 20 MG, UNK
     Dates: start: 20070712

REACTIONS (7)
  - BIOPSY STOMACH ABNORMAL [None]
  - DIZZINESS [None]
  - GASTRITIS [None]
  - HYPERHIDROSIS [None]
  - STOMACH DISCOMFORT [None]
  - VERTIGO [None]
  - VOMITING [None]
